FAERS Safety Report 20220338 (Version 2)
Quarter: 2022Q3

REPORT INFORMATION
  Report Type: Spontaneous
  Country: FR (occurrence: FR)
  Receive Date: 20211223
  Receipt Date: 20220817
  Transmission Date: 20221027
  Serious: Yes (Life-Threatening)
  Sender: FDA-Public Use
  Company Number: None

PATIENT
  Age: 32 Year
  Sex: Male

DRUGS (4)
  1. BUPRENORPHINE [Suspect]
     Active Substance: BUPRENORPHINE
     Dosage: NON RENSEIGN?E
     Route: 048
     Dates: start: 2014, end: 2018
  2. BUPRENORPHINE [Suspect]
     Active Substance: BUPRENORPHINE
     Route: 042
     Dates: start: 2018
  3. HEROIN [Suspect]
     Active Substance: DIAMORPHINE
     Dosage: NON RENSEIGN?E
     Route: 042
     Dates: end: 2004
  4. NICOTINE\TOBACCO LEAF [Suspect]
     Active Substance: NICOTINE\TOBACCO LEAF
     Dosage: 16 PAQUETS ANN?E
     Route: 055

REACTIONS (13)
  - Septic shock [Recovered/Resolved]
  - Pneumonia [Recovering/Resolving]
  - Cardiac valve abscess [Recovered/Resolved]
  - Pulmonary embolism [Recovered/Resolved]
  - Drug abuse [Not Recovered/Not Resolved]
  - Endocarditis staphylococcal [Recovered/Resolved]
  - Off label use [Recovering/Resolving]
  - Tricuspid valve disease [Recovered/Resolved]
  - Malnutrition [Recovering/Resolving]
  - Splenic infarction [Recovering/Resolving]
  - Administration site abscess sterile [Recovered/Resolved]
  - Renal infarct [Recovering/Resolving]
  - Tricuspid valve replacement [Recovered/Resolved]

NARRATIVE: CASE EVENT DATE: 20180101
